FAERS Safety Report 7585741-X (Version None)
Quarter: 2011Q2

REPORT INFORMATION
  Report Type: 
  Country: None (occurrence: None)
  Receive Date: 20110624
  Receipt Date: 20110609
  Transmission Date: 20111010
  Serious: Yes (Hospitalization)
  Sender: FDA-Public Use
  Company Number: 2011S1000888

PATIENT
  Age: 72 Year
  Sex: Female

DRUGS (6)
  1. LOXOPROFEN SODIUM (LOXOPROFEN SODIUM) [Suspect]
     Dosage: ;1X;
     Dates: end: 20080614
  2. LANSOPRAZOLE [Concomitant]
  3. LORATADINE [Concomitant]
  4. HYDROXYZINE [Concomitant]
  5. LIVALO [Suspect]
     Indication: HYPERCHOLESTEROLAEMIA
     Dates: end: 20080617
  6. PIPERACILLIN SODIUM [Suspect]
     Dosage: ;IVDRP
     Route: 041
     Dates: end: 20080614

REACTIONS (1)
  - ACUTE GENERALISED EXANTHEMATOUS PUSTULOSIS [None]
